FAERS Safety Report 8804569 (Version 2)
Quarter: 2012Q4

REPORT INFORMATION
  Report Type: 
  Country: US (occurrence: US)
  Receive Date: 20120924
  Receipt Date: 20121102
  Transmission Date: 20130627
  Serious: Yes (Hospitalization)
  Sender: FDA-Public Use
  Company Number: US-ASTRAZENECA-2012SE71661

PATIENT
  Age: 79 Year
  Sex: Female
  Weight: 68 kg

DRUGS (8)
  1. NEXIUM [Suspect]
     Indication: GASTROOESOPHAGEAL REFLUX DISEASE
     Dosage: TWO TIMES A DAY
     Route: 048
  2. NEXIUM [Suspect]
     Indication: GASTROOESOPHAGEAL REFLUX DISEASE
     Dosage: DAILY
     Route: 048
  3. NEXIUM [Suspect]
     Indication: GASTROOESOPHAGEAL REFLUX DISEASE
     Dosage: TWO TIMES A DAY
     Route: 048
  4. LISINOPRIL [Suspect]
     Indication: HYPERTENSION
     Route: 048
  5. TOPROL XL [Suspect]
     Indication: HYPERTENSION
     Route: 048
  6. TRAMADOL [Concomitant]
     Indication: RESTLESS LEGS SYNDROME
     Route: 048
  7. AMBIEN [Concomitant]
     Indication: SLEEP DISORDER
     Route: 048
  8. MICROZIDE [Concomitant]
     Indication: DIURETIC THERAPY
     Route: 048

REACTIONS (8)
  - Pneumonia [Unknown]
  - Inflammation [Unknown]
  - Pain [Unknown]
  - Dyspepsia [Unknown]
  - Restless legs syndrome [Unknown]
  - Off label use [Unknown]
  - Drug ineffective [Unknown]
  - Intentional drug misuse [Unknown]
